FAERS Safety Report 11300442 (Version 1)
Quarter: 2015Q3

REPORT INFORMATION
  Report Type: Spontaneous
  Country: US (occurrence: US)
  Receive Date: 20150722
  Receipt Date: 20150722
  Transmission Date: 20151125
  Serious: No
  Sender: FDA-Public Use
  Company Number: US-ELI_LILLY_AND_COMPANY-US201208005064

PATIENT
  Sex: Male
  Weight: 68.93 kg

DRUGS (2)
  1. HUMATROPE [Suspect]
     Active Substance: SOMATROPIN
     Indication: DWARFISM
     Dosage: 0.75 (UNKNOWN UNITS)
     Route: 058
  2. HUMATROPE [Suspect]
     Active Substance: SOMATROPIN
     Indication: GROWTH HORMONE DEFICIENCY

REACTIONS (10)
  - Hypersomnia [Unknown]
  - Asthenia [Unknown]
  - Epistaxis [Unknown]
  - Gastrointestinal disorder [Unknown]
  - Calcium deficiency [Unknown]
  - Weight decreased [Unknown]
  - Mouth cyst [Unknown]
  - Fatigue [Unknown]
  - Immune system disorder [Unknown]
  - Viral infection [Unknown]
